FAERS Safety Report 6181081-4 (Version None)
Quarter: 2009Q2

REPORT INFORMATION
  Report Type: 
  Country: None (occurrence: None)
  Receive Date: 20090504
  Receipt Date: 20090504
  Transmission Date: 20091009
  Serious: No
  Sender: FDA-Public Use
  Company Number: None

PATIENT
  Age: 59 Year
  Sex: Female
  Weight: 50.8029 kg

DRUGS (1)
  1. ABILIFY [Suspect]
     Indication: OBSESSIVE-COMPULSIVE DISORDER
     Dosage: 20 MG 1 X DAY PO
     Route: 048
     Dates: start: 20050204, end: 20061222

REACTIONS (4)
  - DYSTONIA [None]
  - MOVEMENT DISORDER [None]
  - MUSCLE SPASMS [None]
  - TARDIVE DYSKINESIA [None]
